FAERS Safety Report 5546147-8 (Version None)
Quarter: 2007Q4

REPORT INFORMATION
  Report Type: 
  Country: None (occurrence: None)
  Receive Date: 20071211
  Receipt Date: 20071129
  Transmission Date: 20080405
  Serious: Yes (Other)
  Sender: FDA-Public Use
  Company Number: DE-PURDUE-DEU_2007_0003880

PATIENT
  Age: 85 Year
  Sex: Male
  Weight: 61 kg

DRUGS (5)
  1. TARGIN 20/10 MG RETARDTABLETTEN [Suspect]
     Indication: PAIN
     Dosage: 20 MG, SINGLE
     Route: 048
     Dates: start: 20071108, end: 20071108
  2. OXYGESIC 20 MG [Suspect]
     Indication: PAIN
     Dosage: 20 MG, UNK
     Route: 048
  3. SYMBICORT [Concomitant]
  4. TORSEMIDE [Concomitant]
  5. OXALOACETIC ACID [Concomitant]

REACTIONS (4)
  - DYSPNOEA [None]
  - MYALGIA [None]
  - RESTLESSNESS [None]
  - SKIN BURNING SENSATION [None]
